FAERS Safety Report 24902737 (Version 2)
Quarter: 2025Q1

REPORT INFORMATION
  Report Type: Report from Study
  Country: US (occurrence: US)
  Receive Date: 20250130
  Receipt Date: 20250313
  Transmission Date: 20250409
  Serious: Yes (Hospitalization)
  Sender: EMD SERONO INC
  Company Number: US-Merck Healthcare KGaA-2025003651

PATIENT
  Sex: Female

DRUGS (2)
  1. REBIF [Suspect]
     Active Substance: INTERFERON BETA-1A
     Indication: Multiple sclerosis
     Dates: start: 20151210
  2. REBIF [Suspect]
     Active Substance: INTERFERON BETA-1A

REACTIONS (4)
  - Nosocomial infection [Unknown]
  - Colitis [Unknown]
  - Pneumonia aspiration [Unknown]
  - Foot fracture [Recovering/Resolving]
